FAERS Safety Report 9016948 (Version 1)
Quarter: 2013Q1

REPORT INFORMATION
  Report Type: Spontaneous
  Country: MX (occurrence: MX)
  Receive Date: 20130117
  Receipt Date: 20130117
  Transmission Date: 20140127
  Serious: Yes (Other)
  Sender: FDA-Public Use
  Company Number: PHHY2013MX004083

PATIENT
  Sex: Female

DRUGS (2)
  1. DIOVAN [Suspect]
     Indication: HYPERTENSION
     Dosage: 1 DF, DAILY
     Route: 048
     Dates: start: 20090205
  2. BI EUGLUCON [Concomitant]
     Indication: DIABETES MELLITUS
     Dosage: 1 DF, DAILY

REACTIONS (1)
  - Gallbladder neoplasm [Not Recovered/Not Resolved]
